FAERS Safety Report 10881723 (Version 1)
Quarter: 2015Q1

REPORT INFORMATION
  Report Type: Spontaneous
  Country: US (occurrence: US)
  Receive Date: 20150303
  Receipt Date: 20150303
  Transmission Date: 20150721
  Serious: No
  Sender: FDA-Public Use
  Company Number: US-ELI_LILLY_AND_COMPANY-US201502003153

PATIENT
  Sex: Female

DRUGS (1)
  1. CYRAMZA [Suspect]
     Active Substance: RAMUCIRUMAB
     Indication: GASTRIC DISORDER
     Dosage: UNK, UNKNOWN
     Route: 065

REACTIONS (3)
  - Erythema [Unknown]
  - Hypertension [Unknown]
  - Paraesthesia [Unknown]
